FAERS Safety Report 12891332 (Version 1)
Quarter: 2016Q4

REPORT INFORMATION
  Report Type: Spontaneous
  Country: US (occurrence: US)
  Receive Date: 20161028
  Receipt Date: 20161028
  Transmission Date: 20170207
  Serious: Yes (Other)
  Sender: FDA-Public Use
  Company Number: US-ASTRAZENECA-2016SF10479

PATIENT
  Age: 59 Year
  Sex: Female
  Weight: 83.9 kg

DRUGS (17)
  1. LANTUS [Concomitant]
     Active Substance: INSULIN GLARGINE
     Indication: DIABETES MELLITUS
     Dosage: TWO TIMES A DAY
     Route: 059
  2. CRANBERRY. [Concomitant]
     Active Substance: CRANBERRY
     Indication: URINARY TRACT INFECTION
     Route: 048
  3. GLIPIZIDE. [Concomitant]
     Active Substance: GLIPIZIDE
     Indication: DIABETES MELLITUS
     Route: 048
  4. GLUCOPHAGE XR [Concomitant]
     Active Substance: METFORMIN HYDROCHLORIDE
     Indication: DIABETES MELLITUS
     Route: 048
  5. LEVOTHYROXINE. [Concomitant]
     Active Substance: LEVOTHYROXINE
     Indication: THYROID DISORDER
     Route: 048
  6. ATORVASTATIN [Concomitant]
     Active Substance: ATORVASTATIN
     Indication: BLOOD CHOLESTEROL
     Route: 048
     Dates: start: 201609
  7. TYLENOL [Concomitant]
     Active Substance: ACETAMINOPHEN
  8. BRILINTA [Suspect]
     Active Substance: TICAGRELOR
     Indication: STENT PLACEMENT
     Route: 048
     Dates: start: 20161014
  9. ASPIRIN. [Concomitant]
     Active Substance: ASPIRIN
     Indication: CARDIAC DISORDER
     Route: 048
     Dates: start: 20161014
  10. FISH OIL [Concomitant]
     Active Substance: FISH OIL
     Route: 048
  11. DICLOFENAC EC [Concomitant]
     Indication: ARTHRITIS
     Route: 048
     Dates: start: 201605
  12. OMEPRAZOLE OTC [Suspect]
     Active Substance: OMEPRAZOLE
     Indication: VOMITING
     Route: 048
     Dates: start: 2006
  13. BRILINTA [Suspect]
     Active Substance: TICAGRELOR
     Indication: ACUTE CORONARY SYNDROME
     Route: 048
     Dates: start: 20161014
  14. VITAMIN D3 [Concomitant]
     Active Substance: CHOLECALCIFEROL
     Route: 048
     Dates: start: 2016
  15. OMEPRAZOLE OTC [Suspect]
     Active Substance: OMEPRAZOLE
     Indication: DIARRHOEA
     Route: 048
     Dates: start: 2006
  16. IMODIUM [Concomitant]
     Active Substance: LOPERAMIDE HYDROCHLORIDE
     Indication: DIARRHOEA
     Dosage: 2.0MG AS REQUIRED
     Route: 048
     Dates: start: 201609
  17. MULTI VITAMIN [Concomitant]
     Active Substance: VITAMINS
     Route: 048

REACTIONS (9)
  - Diarrhoea [Unknown]
  - Chest pain [Unknown]
  - Urinary tract infection [Unknown]
  - Ligament rupture [Unknown]
  - Thyroid disorder [Unknown]
  - Dyspnoea [Unknown]
  - Arthritis [Unknown]
  - Vomiting [Unknown]
  - Arthralgia [Unknown]

NARRATIVE: CASE EVENT DATE: 2006
